FAERS Safety Report 13836335 (Version 1)
Quarter: 2017Q3

REPORT INFORMATION
  Report Type: Spontaneous
  Country: US (occurrence: US)
  Receive Date: 20170804
  Receipt Date: 20170804
  Transmission Date: 20171127
  Serious: Yes (Hospitalization, Other)
  Sender: FDA-Public Use
  Company Number: US-NOVOPROD-545599

PATIENT
  Age: 35 Year
  Sex: Female
  Weight: 65.31 kg

DRUGS (1)
  1. NOVOLOG [Suspect]
     Active Substance: INSULIN ASPART
     Indication: TYPE 1 DIABETES MELLITUS
     Dosage: 1 UNIT PER 10 GRAMS CARBS AT MEALS AND SNACK IF AT LEAST 10 GRAMS CARBS, PLUS SLIDING SCALE 4XDAY
     Route: 058

REACTIONS (12)
  - Schizoaffective disorder bipolar type [Unknown]
  - Blood glucose increased [Unknown]
  - Injection site pain [Unknown]
  - Drug ineffective [Unknown]
  - Glycosylated haemoglobin increased [Unknown]
  - Injection site bruising [Unknown]
  - Product quality issue [Unknown]
  - Product quality issue [Recovered/Resolved]
  - Injection site swelling [Unknown]
  - Mental disorder [Unknown]
  - Polycystic ovaries [Unknown]
  - Blood glucose increased [Recovered/Resolved]

NARRATIVE: CASE EVENT DATE: 201608
